FAERS Safety Report 7378712-X (Version None)
Quarter: 2011Q1

REPORT INFORMATION
  Report Type: 
  Country: None (occurrence: None)
  Receive Date: 20110317
  Receipt Date: 20110308
  Transmission Date: 20110831
  Serious: Yes (Disabling)
  Sender: FDA-Public Use
  Company Number: 2011SP010753

PATIENT
  Age: 56 Year
  Sex: Female
  Weight: 89.2 kg

DRUGS (13)
  1. BENDROFLUMETHIAZIDE [Concomitant]
  2. VENTOLIN [Concomitant]
  3. CROTAMITON [Concomitant]
  4. FLUTICASONE PROPIONATE [Concomitant]
  5. LIQUID PARAFFFIN [Concomitant]
  6. SALMETEROL [Concomitant]
  7. SERTRALINE HYDROCHLORIDE [Concomitant]
  8. CO-DYDRAMOL [Concomitant]
  9. UREA [Concomitant]
  10. ZOPICLONE [Concomitant]
  11. MIRTAZAPINE [Suspect]
  12. CETIRIZINE HCL [Concomitant]
  13. RAMIPRIL [Concomitant]

REACTIONS (1)
  - DIARRHOEA [None]
